FAERS Safety Report 4637558-3 (Version None)
Quarter: 2005Q2

REPORT INFORMATION
  Report Type: 
  Country: None (occurrence: None)
  Receive Date: 20050325
  Receipt Date: 20050201
  Transmission Date: 20051028
  Serious: No
  Sender: FDA-Public Use
  Company Number: USA040360699

PATIENT
  Age: 69 Year
  Sex: Female
  Weight: 105 kg

DRUGS (3)
  1. FORTEO [Suspect]
     Indication: OSTEOPOROSIS
     Dosage: 20 UG
     Dates: start: 20040209
  2. GLEEVEC [Concomitant]
  3. PREDNISONE [Concomitant]

REACTIONS (7)
  - ERYTHEMA [None]
  - INJECTION SITE ERYTHEMA [None]
  - INJECTION SITE HAEMORRHAGE [None]
  - PRURITUS [None]
  - RASH [None]
  - WEIGHT DECREASED [None]
  - WEIGHT INCREASED [None]
